FAERS Safety Report 7342842-9 (Version None)
Quarter: 2011Q1

REPORT INFORMATION
  Report Type: 
  Country: None (occurrence: None)
  Receive Date: 20110301
  Receipt Date: 20110218
  Transmission Date: 20110831
  Serious: Yes (Other)
  Sender: FDA-Public Use
  Company Number: LTI2011A00045

PATIENT
  Age: 60 Year
  Sex: Male

DRUGS (2)
  1. ACTOS [Suspect]
     Indication: TYPE 2 DIABETES MELLITUS
     Dosage: 30 MG (30 MG, 1 IN 1 D) ORAL
     Route: 048
     Dates: start: 20081101, end: 20110204
  2. MEDIATOR (BENFLUOREX HYDROCHLORIDE) [Concomitant]

REACTIONS (1)
  - BLADDER CANCER [None]
